FAERS Safety Report 7721256-3 (Version None)
Quarter: 2011Q3

REPORT INFORMATION
  Report Type: 
  Country: None (occurrence: None)
  Receive Date: 20110831
  Receipt Date: 20110830
  Transmission Date: 20111222
  Serious: Yes (Other)
  Sender: FDA-Public Use
  Company Number: ZA-PFIZER INC-2011201527

PATIENT
  Sex: Male

DRUGS (5)
  1. VARENICLINE TARTRATE [Suspect]
     Dosage: 1 MG, 2X/DAY (BD)
     Route: 048
     Dates: start: 20110101, end: 20110830
  2. BISOPROLOL FUMARATE [Concomitant]
     Indication: HYPERTENSION
     Dosage: UNK
     Route: 048
  3. CRESTOR [Concomitant]
     Indication: HYPERTENSION
     Dosage: UNK
     Route: 048
  4. MICARDIS HCT [Concomitant]
     Indication: HYPERTENSION
     Dosage: UNK
     Route: 048
  5. ASPIRIN [Concomitant]
     Indication: HYPERTENSION
     Dosage: UNK
     Route: 048

REACTIONS (2)
  - GINGIVAL PAIN [None]
  - TOOTHACHE [None]
